FAERS Safety Report 6055279-X (Version None)
Quarter: 2009Q1

REPORT INFORMATION
  Report Type: 
  Country: None (occurrence: None)
  Receive Date: 20090123
  Receipt Date: 20090112
  Transmission Date: 20090719
  Serious: Yes (Hospitalization)
  Sender: FDA-Public Use
  Company Number: DSA_33084_2009

PATIENT
  Sex: Female

DRUGS (4)
  1. CARDIZEM CD [Suspect]
     Indication: DRUG USE FOR UNKNOWN INDICATION
     Dosage: 300 MG QD ORAL
     Route: 048
  2. PROPAFENONE HCL [Suspect]
     Indication: ARRHYTHMIA PROPHYLAXIS
     Dosage: 225 MG BID ORAL, 225 MG TID ORAL
     Route: 048
     Dates: start: 20080724, end: 20081125
  3. PROPAFENONE HCL [Suspect]
     Indication: ARRHYTHMIA PROPHYLAXIS
     Dosage: 225 MG BID ORAL, 225 MG TID ORAL
     Route: 048
     Dates: start: 20081125
  4. CARDIZEM CD [Concomitant]

REACTIONS (6)
  - ARRHYTHMIA [None]
  - DRUG DOSE OMISSION [None]
  - HYPOTENSION [None]
  - PRODUCT QUALITY ISSUE [None]
  - SICK SINUS SYNDROME [None]
  - SYNCOPE [None]
